FAERS Safety Report 8021180-5 (Version None)
Quarter: 2011Q4

REPORT INFORMATION
  Report Type: 
  Country: None (occurrence: None)
  Receive Date: 20111221
  Receipt Date: 20111214
  Transmission Date: 20120403
  Serious: Yes (Hospitalization)
  Sender: FDA-Public Use
  Company Number: 2011030085

PATIENT
  Sex: Female
  Weight: 69.4003 kg

DRUGS (8)
  1. CRESTOR [Concomitant]
  2. ZEMAIRA [Suspect]
     Indication: ALPHA-1 ANTI-TRYPSIN DEFICIENCY
     Dosage: (60 MG/KG (+/- 10%) 0.08 ML/KG/MIN. INTRAVENOUS (NOT OTHERWISE SPECIFIED))
     Route: 042
     Dates: start: 20100101
  3. FOSAMAX [Concomitant]
  4. ALBUTEROL [Concomitant]
  5. LEVOTHYROXINE SODIUM [Concomitant]
  6. ADVAIR DISKUS 100/50 [Concomitant]
  7. HEPARIN [Concomitant]
  8. SPIRIVA [Concomitant]

REACTIONS (8)
  - RETCHING [None]
  - FATIGUE [None]
  - BACTERAEMIA [None]
  - DYSPNOEA [None]
  - ABDOMINAL DISCOMFORT [None]
  - GASTROINTESTINAL HAEMORRHAGE [None]
  - CHILLS [None]
  - DEVICE RELATED INFECTION [None]
